FAERS Safety Report 10189909 (Version 2)
Quarter: 2014Q2

REPORT INFORMATION
  Report Type: Spontaneous
  Country: US (occurrence: US)
  Receive Date: 20140522
  Receipt Date: 20140522
  Transmission Date: 20141212
  Serious: No
  Sender: FDA-Public Use
  Company Number: US-ASTRAZENECA-2013SE73015

PATIENT
  Sex: Female

DRUGS (4)
  1. PULMICORT FLEXHALER [Suspect]
     Indication: ASTHMA
     Dosage: 180 MCG 2 PUFFS BID
     Route: 055
     Dates: start: 201212
  2. INAHLED STEROIDS [Concomitant]
     Dosage: UNK UNK
  3. ORAL MEDICATIONS [Concomitant]
     Dosage: UNK UNK
  4. BLOOD PRESSURE MEDICATION [Concomitant]
     Indication: BLOOD PRESSURE ABNORMAL
     Dosage: UNK UNK

REACTIONS (2)
  - Feeling abnormal [Recovered/Resolved]
  - Drug dose omission [Recovered/Resolved]
